FAERS Safety Report 4550748-3 (Version None)
Quarter: 2004Q4

REPORT INFORMATION
  Report Type: 
  Country: None (occurrence: None)
  Receive Date: 20041217
  Receipt Date: 20040924
  Transmission Date: 20050328
  Serious: No
  Sender: FDA-Public Use
  Company Number: 2004-BP-08797BP

PATIENT
  Age: 80 Year
  Sex: Female
  Weight: 56.7 kg

DRUGS (4)
  1. SPIRIVA [Suspect]
     Indication: CHRONIC OBSTRUCTIVE AIRWAYS DISEASE
     Dosage: 18 MCG (18 MCG 1 IN 1 D) IH
     Route: 055
     Dates: start: 20040830, end: 20040924
  2. ADVIAR (SERETIDE MITE) [Concomitant]
  3. ACETYLSALICYLIC ACID SRT [Concomitant]
  4. SPIRIVA [Suspect]

REACTIONS (3)
  - GLOSSODYNIA [None]
  - ORAL PAIN [None]
  - STOMATITIS [None]
